FAERS Safety Report 10018218 (Version 2)
Quarter: 2014Q1

REPORT INFORMATION
  Report Type: Spontaneous
  Country: US (occurrence: US)
  Receive Date: 20140318
  Receipt Date: 20140318
  Transmission Date: 20141002
  Serious: Yes (Other)
  Sender: FDA-Public Use
  Company Number: US-BRISTOL-MYERS SQUIBB COMPANY-19356823

PATIENT
  Age: 58 Year
  Sex: Male

DRUGS (4)
  1. ERBITUX [Suspect]
     Dates: start: 20130731, end: 20130904
  2. PLATINOL [Suspect]
  3. PACLITAXEL [Suspect]
     Dates: start: 20130731, end: 20130904
  4. CARBOPLATIN [Suspect]
     Dates: start: 20121112, end: 20130221

REACTIONS (1)
  - Malignant neoplasm progression [Unknown]
